FAERS Safety Report 7819412-9 (Version None)
Quarter: 2011Q4

REPORT INFORMATION
  Report Type: 
  Country: None (occurrence: None)
  Receive Date: 20111018
  Receipt Date: 20101126
  Transmission Date: 20120403
  Serious: No
  Sender: FDA-Public Use
  Company Number: US-ASTRAZENECA-2010SE48280

PATIENT
  Age: 22311 Day
  Sex: Male

DRUGS (1)
  1. SYMBICORT [Suspect]
     Dosage: 160/4.5 TWO PUFFS
     Route: 055
     Dates: start: 20100922

REACTIONS (2)
  - INCORRECT DOSE ADMINISTERED [None]
  - COUGH [None]
